FAERS Safety Report 6198099-8 (Version None)
Quarter: 2009Q2

REPORT INFORMATION
  Report Type: 
  Country: None (occurrence: None)
  Receive Date: 20090521
  Receipt Date: 20090514
  Transmission Date: 20091009
  Serious: Yes (Death, Disabling, Other)
  Sender: FDA-Public Use
  Company Number: US-PFIZER INC-2004213638US

PATIENT
  Sex: Female

DRUGS (10)
  1. PROVERA [Suspect]
     Indication: HORMONE REPLACEMENT THERAPY
     Dosage: 2.5 MG, UNK
     Route: 048
     Dates: start: 19950101, end: 20000101
  2. PROVERA [Suspect]
     Indication: MENOPAUSAL SYMPTOMS
  3. PREMARIN [Suspect]
     Indication: HORMONE REPLACEMENT THERAPY
     Dosage: 1.25MG AND 0.625MG
     Route: 065
     Dates: start: 19950101, end: 20000101
  4. PREMARIN [Suspect]
     Indication: MENOPAUSAL SYMPTOMS
  5. ESTRATEST [Suspect]
     Indication: HORMONE REPLACEMENT THERAPY
     Route: 065
     Dates: start: 19950101, end: 20000101
  6. ESTRATEST [Suspect]
     Indication: MENOPAUSAL SYMPTOMS
  7. ESTRACE [Suspect]
     Indication: HORMONE REPLACEMENT THERAPY
     Dosage: 1 MG, UNK
     Route: 065
     Dates: start: 19950101, end: 20000101
  8. ESTRACE [Suspect]
     Indication: MENOPAUSAL SYMPTOMS
  9. ESTRATEST H.S. [Suspect]
     Indication: HORMONE REPLACEMENT THERAPY
     Route: 048
  10. ESTRATEST H.S. [Suspect]

REACTIONS (1)
  - BREAST CANCER FEMALE [None]
